FAERS Safety Report 8470750-9 (Version None)
Quarter: 2012Q2

REPORT INFORMATION
  Report Type: 
  Country: None (occurrence: None)
  Receive Date: 20120627
  Receipt Date: 20120619
  Transmission Date: 20120825
  Serious: Yes (Hospitalization)
  Sender: FDA-Public Use
  Company Number: US-BAYER-2012-052311

PATIENT
  Age: 28 Year
  Sex: Female
  Weight: 58.957 kg

DRUGS (3)
  1. DROSPIRENONE AND ETHINYL ESTRADIOL [Suspect]
     Indication: DYSMENORRHOEA
  2. DROSPIRENONE AND ETHINYL ESTRADIOL [Suspect]
     Indication: ENDOMETRIOSIS
     Dosage: UNK
     Dates: start: 20090922, end: 20091120
  3. SERAX [Concomitant]
     Indication: INSOMNIA
     Dosage: 10 MG, HS
     Route: 048

REACTIONS (3)
  - PULMONARY EMBOLISM [None]
  - PAIN [None]
  - INJURY [None]
